FAERS Safety Report 8263194-6 (Version None)
Quarter: 2012Q2

REPORT INFORMATION
  Report Type: 
  Country: None (occurrence: None)
  Receive Date: 20120405
  Receipt Date: 20120330
  Transmission Date: 20120825
  Serious: Yes (Life-Threatening, Other)
  Sender: FDA-Public Use
  Company Number: JP-ABBOTT-10P-087-0642513-00

PATIENT
  Sex: Female
  Weight: 12.6 kg

DRUGS (19)
  1. SEVOFLURANE [Suspect]
     Indication: INDUCTION AND MAINTENANCE OF ANAESTHESIA
     Dosage: 2%
     Route: 055
     Dates: start: 20031105, end: 20031105
  2. OXYGEN [Concomitant]
     Indication: INDUCTION AND MAINTENANCE OF ANAESTHESIA
     Route: 055
     Dates: start: 20031105, end: 20031105
  3. GLUCOSE/LACTATED RINGER'S SOLUTION [Concomitant]
     Indication: PRODUCT USED FOR UNKNOWN INDICATION
  4. TULOBUTEROL [Concomitant]
     Indication: ASTHMA
     Route: 062
  5. HUMAM PLASMA PROTEIN FRACTION [Concomitant]
     Indication: PRODUCT USED FOR UNKNOWN INDICATION
     Dates: start: 20031105, end: 20031105
  6. ASPIRIN [Concomitant]
     Indication: ATRIOVENTRICULAR SEPTAL DEFECT
     Route: 048
  7. VECURONIUM BROMIDE [Concomitant]
     Indication: INDUCTION OF ANAESTHESIA
     Route: 042
     Dates: start: 20031105, end: 20031105
  8. INOTROPIC AGENTS [Concomitant]
     Indication: DRUG THERAPY
  9. ELECTROLYTE REHYDRATION [Concomitant]
     Indication: PRODUCT USED FOR UNKNOWN INDICATION
     Dates: start: 20031105, end: 20031105
  10. DIGOXIN [Concomitant]
     Indication: ATRIOVENTRICULAR SEPTAL DEFECT
     Route: 048
  11. NITROUS OXIDE [Concomitant]
     Dosage: 4 L/MIN
     Dates: start: 20031105, end: 20031105
  12. VASODEPRESSORS [Concomitant]
     Indication: VASOPRESSIVE THERAPY
  13. VECURONIUM BROMIDE [Concomitant]
     Indication: PRODUCT USED FOR UNKNOWN INDICATION
     Dates: start: 20031105, end: 20031105
  14. DIURETIC AGENTS [Concomitant]
     Indication: DIURETIC THERAPY
  15. BETAMETHASONE [Concomitant]
     Indication: PRODUCT USED FOR UNKNOWN INDICATION
     Dates: start: 20031105, end: 20031105
  16. FUROSEMIDE [Concomitant]
     Indication: ATRIOVENTRICULAR SEPTAL DEFECT
     Route: 048
  17. NITROUS OXIDE [Concomitant]
     Indication: INDUCTION AND MAINTENANCE OF ANAESTHESIA
     Route: 055
     Dates: start: 20031105, end: 20031105
  18. SPIRONOLACTONE [Concomitant]
     Indication: ATRIOVENTRICULAR SEPTAL DEFECT
     Route: 048
  19. FENTANYL CITRATE [Concomitant]
     Indication: PRODUCT USED FOR UNKNOWN INDICATION

REACTIONS (2)
  - CARDIOVASCULAR INSUFFICIENCY [None]
  - ATRIOVENTRICULAR BLOCK COMPLETE [None]
